FAERS Safety Report 4737096-3 (Version None)
Quarter: 2005Q3

REPORT INFORMATION
  Report Type: 
  Country: None (occurrence: None)
  Receive Date: 20050728
  Receipt Date: 20050614
  Transmission Date: 20060218
  Serious: No
  Sender: FDA-Public Use
  Company Number: 200515024US

PATIENT
  Sex: 0

DRUGS (1)
  1. KETEK [Suspect]

REACTIONS (2)
  - DIZZINESS [None]
  - VERTIGO [None]
